FAERS Safety Report 5952141-5 (Version None)
Quarter: 2008Q4

REPORT INFORMATION
  Report Type: 
  Country: None (occurrence: None)
  Receive Date: 20081113
  Receipt Date: 20080624
  Transmission Date: 20090506
  Serious: No
  Sender: FDA-Public Use
  Company Number: A0734543A

PATIENT
  Age: 46 Year
  Sex: Female

DRUGS (8)
  1. COREG [Suspect]
     Indication: DRUG USE FOR UNKNOWN INDICATION
     Dosage: 6.25 PER DAY
     Route: 048
     Dates: start: 20080506, end: 20080509
  2. LEXAPRO [Concomitant]
  3. ZESTRIL [Concomitant]
  4. ACURETIC [Concomitant]
  5. TOPROL-XL [Concomitant]
  6. PROTONIX [Concomitant]
  7. PREVACID [Concomitant]
  8. CARDIZEM [Concomitant]

REACTIONS (2)
  - DEREALISATION [None]
  - DIZZINESS [None]
